FAERS Safety Report 13898490 (Version 3)
Quarter: 2017Q3

REPORT INFORMATION
  Report Type: Spontaneous
  Country: US (occurrence: US)
  Receive Date: 20170823
  Receipt Date: 20170914
  Transmission Date: 20171127
  Serious: Yes (Other)
  Sender: FDA-Public Use
  Company Number: US-TEVA-800066USA

PATIENT
  Sex: Male

DRUGS (9)
  1. PERCOCET [Concomitant]
     Active Substance: ACETAMINOPHEN\OXYCODONE HYDROCHLORIDE
     Dosage: 10 X 6
     Dates: start: 201706
  2. FENTANYL. [Suspect]
     Active Substance: FENTANYL
     Indication: PAIN
     Route: 062
     Dates: start: 2012
  3. FENTANYL. [Suspect]
     Active Substance: FENTANYL
  4. CYMBALTA [Concomitant]
     Active Substance: DULOXETINE HYDROCHLORIDE
     Dosage: X 1
  5. OXYCODONE [Concomitant]
     Active Substance: OXYCODONE
     Dosage: 4-6 TIMES DAILY
     Dates: start: 201706
  6. LYRICA [Concomitant]
     Active Substance: PREGABALIN
     Dosage: X 2
  7. ALLOPURINOL. [Concomitant]
     Active Substance: ALLOPURINOL
     Dosage: X 1
  8. DIAZEPAM. [Concomitant]
     Active Substance: DIAZEPAM
     Dosage: X 2
  9. FLOMAX [Concomitant]
     Active Substance: TAMSULOSIN HYDROCHLORIDE
     Dosage: X 1

REACTIONS (10)
  - Fall [Unknown]
  - Drug tolerance [Unknown]
  - Head injury [Unknown]
  - Joint injury [Unknown]
  - Cellulitis [Unknown]
  - Road traffic accident [Unknown]
  - Blood urine present [Unknown]
  - Limb injury [Unknown]
  - Cystitis [Unknown]
  - Drug ineffective [Unknown]

NARRATIVE: CASE EVENT DATE: 2017
